FAERS Safety Report 15758004 (Version 2)
Quarter: 2019Q1

REPORT INFORMATION
  Report Type: Report from Study
  Country: US (occurrence: US)
  Receive Date: 20181225
  Receipt Date: 20190313
  Transmission Date: 20190417
  Serious: Yes (Hospitalization, Other)
  Sender: FDA-Public Use
  Company Number: US-ROCHE-2232627

PATIENT
  Sex: Female
  Weight: 72.64 kg

DRUGS (1)
  1. OCREVUS [Suspect]
     Active Substance: OCRELIZUMAB
     Indication: RELAPSING MULTIPLE SCLEROSIS
     Route: 065
     Dates: start: 2017

REACTIONS (15)
  - Pneumonia [Recovered/Resolved]
  - Fatigue [Not Recovered/Not Resolved]
  - Diplopia [Unknown]
  - Muscle spasticity [Not Recovered/Not Resolved]
  - Eye pain [Unknown]
  - Pupillary reflex impaired [Unknown]
  - Bronchitis [Unknown]
  - Neuralgia [Recovered/Resolved]
  - Impaired driving ability [Not Recovered/Not Resolved]
  - Vision blurred [Unknown]
  - Hypoaesthesia [Not Recovered/Not Resolved]
  - Optic neuritis [Unknown]
  - Road traffic accident [Unknown]
  - Respiratory arrest [Unknown]
  - Sepsis [Recovered/Resolved]

NARRATIVE: CASE EVENT DATE: 2018
